FAERS Safety Report 8696685 (Version 2)
Quarter: 2013Q4

REPORT INFORMATION
  Report Type: Spontaneous
  Country: US (occurrence: US)
  Receive Date: 20120801
  Receipt Date: 20131105
  Transmission Date: 20140711
  Serious: Yes (Other)
  Sender: FDA-Public Use
  Company Number: US-009507513-1207USA011221

PATIENT
  Sex: Female

DRUGS (5)
  1. ZOCOR [Suspect]
     Dosage: UNK DF, UNK
     Route: 048
  2. BUPROPION HYDROCHLORIDE [Suspect]
     Dosage: UNK DF, UNK
  3. GABAPENTIN [Suspect]
     Dosage: UNK DF, UNK
  4. AMPYRA [Suspect]
     Dosage: 10 MG, UNK
  5. DIAZEPAM [Suspect]
     Dosage: UNK DF, UNK

REACTIONS (7)
  - Convulsion [Unknown]
  - Muscle disorder [Unknown]
  - Eye movement disorder [Unknown]
  - Feeling abnormal [Unknown]
  - Malaise [Unknown]
  - Suicidal ideation [Unknown]
  - Urinary incontinence [Unknown]
